FAERS Safety Report 4405723-6 (Version None)
Quarter: 2004Q3

REPORT INFORMATION
  Report Type: 
  Country: None (occurrence: None)
  Receive Date: 20040723
  Receipt Date: 20031126
  Transmission Date: 20050211
  Serious: No
  Sender: FDA-Public Use
  Company Number: US-GLAXOSMITHKLINE-A0441183A

PATIENT
  Age: 73 Year
  Sex: Female

DRUGS (8)
  1. AVANDIA [Suspect]
     Dosage: 8MG TWICE PER DAY
     Route: 048
  2. DITROPAN [Concomitant]
  3. COZAAR [Concomitant]
  4. DYAZIDE [Concomitant]
  5. ZOCOR [Concomitant]
  6. VIOXX [Concomitant]
  7. PREVACID [Concomitant]
  8. CARDIAZEM [Concomitant]

REACTIONS (1)
  - FACE OEDEMA [None]
